FAERS Safety Report 5867231-5 (Version None)
Quarter: 2008Q3

REPORT INFORMATION
  Report Type: 
  Country: None (occurrence: None)
  Receive Date: 20080902
  Receipt Date: 20080811
  Transmission Date: 20090109
  Serious: Yes (Disabling)
  Sender: FDA-Public Use
  Company Number: US-MERCK-0808USA01993

PATIENT
  Sex: Female

DRUGS (1)
  1. FOSAMAX [Suspect]
     Route: 048
     Dates: start: 20011201, end: 20070701

REACTIONS (3)
  - BONE DISORDER [None]
  - LOW TURNOVER OSTEOPATHY [None]
  - STRESS FRACTURE [None]
